FAERS Safety Report 9508418 (Version 2)
Quarter: 2014Q1

REPORT INFORMATION
  Report Type: Spontaneous
  Country: US (occurrence: None)
  Receive Date: 20130305
  Receipt Date: 20140306
  Transmission Date: 20141002
  Serious: Yes (Other)
  Sender: FDA-Public Use
  Company Number: 163-21880-12082522

PATIENT
  Age: 64 Year
  Sex: Female

DRUGS (5)
  1. REVLIMID [Suspect]
     Indication: PLASMA CELL MYELOMA
     Dosage: 25 MG, 21 IN 28 D, PO
     Route: 048
     Dates: start: 201012
  2. REVLIMID [Suspect]
     Indication: AMYLOIDOSIS
     Dosage: 25 MG, 21 IN 28 D, PO
     Route: 048
     Dates: start: 201012
  3. ESTROVEN ENERGY [Concomitant]
  4. NATURES BOUNTY HAIR SKIN AND NAIL VITAMIN (OTHER VITAMIN PRODUCTS, COMBINATIONS) [Concomitant]
  5. ANTIOXIDANT VITAMIN (SELETOP-C) [Concomitant]

REACTIONS (12)
  - Joint stiffness [None]
  - Fatigue [None]
  - Herpes zoster [None]
  - White blood cell count decreased [None]
  - Pruritus [None]
  - Hypoaesthesia [None]
  - Sinus congestion [None]
  - Skin exfoliation [None]
  - Eczema [None]
  - Epistaxis [None]
  - Herpes simplex [None]
  - Sinusitis [None]
